FAERS Safety Report 25728918 (Version 1)
Quarter: 2025Q3

REPORT INFORMATION
  Report Type: Report from Study
  Country: UY (occurrence: UY)
  Receive Date: 20250826
  Receipt Date: 20250826
  Transmission Date: 20251021
  Serious: Yes (Other)
  Sender: ABBVIE
  Company Number: UY-ABBVIE-6429761

PATIENT
  Age: 65 Year
  Sex: Female

DRUGS (1)
  1. RINVOQ [Suspect]
     Active Substance: UPADACITINIB
     Indication: Rheumatoid arthritis
     Dosage: 15MG X 30 TABLETS?DOSE FORM: TABLET
     Route: 048
     Dates: start: 20230203, end: 2025

REACTIONS (7)
  - Chronic obstructive pulmonary disease [Recovering/Resolving]
  - Influenza [Recovering/Resolving]
  - Fatigue [Recovered/Resolved]
  - Blood cholesterol increased [Recovering/Resolving]
  - Blood triglycerides increased [Recovering/Resolving]
  - Weight increased [Recovering/Resolving]
  - Pulmonary mass [Recovering/Resolving]

NARRATIVE: CASE EVENT DATE: 20250101
